FAERS Safety Report 24576269 (Version 1)
Quarter: 2024Q4

REPORT INFORMATION
  Report Type: Spontaneous
  Country: GB (occurrence: GB)
  Receive Date: 20241104
  Receipt Date: 20241104
  Transmission Date: 20250115
  Serious: Yes (Other)
  Sender: TORRENT PHARMA INC.
  Company Number: None

PATIENT
  Age: 56 Year
  Sex: Male
  Weight: 91 kg

DRUGS (8)
  1. LEVETIRACETAM [Suspect]
     Active Substance: LEVETIRACETAM
     Indication: Ill-defined disorder
     Route: 065
  2. CLOBAZAM [Concomitant]
     Active Substance: CLOBAZAM
     Indication: Ill-defined disorder
     Dosage: UNKNOWN
     Route: 065
  3. CHOLECALCIFEROL [Concomitant]
     Active Substance: CHOLECALCIFEROL
     Indication: Ill-defined disorder
     Dosage: TAEK ONE DAILY
     Route: 065
     Dates: start: 20240216
  4. LACOSAMIDE [Concomitant]
     Active Substance: LACOSAMIDE
     Indication: Ill-defined disorder
     Dosage: TAKE ONCE TWICE A DAY
     Route: 065
     Dates: start: 20241008
  5. NITROFURANTOIN [Concomitant]
     Active Substance: NITROFURANTOIN
     Indication: Ill-defined disorder
     Dosage: TAKE ONE TWICE DAILY FOR 7 DAYS
     Route: 065
     Dates: start: 20240916, end: 20240923
  6. NYSTATIN [Concomitant]
     Active Substance: NYSTATIN
     Indication: Ill-defined disorder
     Dosage: 1ML DROPPED INTO THE MOUTH FOUR-TIME FS A DAY FOR.
     Route: 065
     Dates: start: 20241008, end: 20241015
  7. PHENYTOIN SODIUM [Concomitant]
     Active Substance: PHENYTOIN SODIUM
     Indication: Ill-defined disorder
     Dosage: TAKE ONE DAILY
     Route: 065
     Dates: start: 20240704
  8. TEGRETOL [Concomitant]
     Active Substance: CARBAMAZEPINE
     Indication: Ill-defined disorder
     Dosage: TAKE TWO AT NIGHT
     Route: 065
     Dates: start: 20230710

REACTIONS (2)
  - Mood swings [Recovered/Resolved]
  - Abdominal discomfort [Recovered/Resolved]
